FAERS Safety Report 5674961-7 (Version None)
Quarter: 2008Q2

REPORT INFORMATION
  Report Type: 
  Country: None (occurrence: None)
  Receive Date: 20080303
  Receipt Date: 20070420
  Transmission Date: 20081010
  Serious: Yes (Life-Threatening, Hospitalization)
  Sender: FDA-Public Use
  Company Number: RB-6027-2007

PATIENT
  Age: 16 Month
  Sex: Male
  Weight: 12.5 kg

DRUGS (1)
  1. SUBOXONE [Suspect]
     Dosage: ACCIDENTAL INGESTION BY CHILD - 8 MG TABLET FOUND IN MOUTH BUCCAL
     Route: 002

REACTIONS (8)
  - ACCIDENTAL EXPOSURE [None]
  - ACCIDENTAL POISONING [None]
  - DYSPNOEA [None]
  - HYPOTENSION [None]
  - HYPOVENTILATION [None]
  - MIOSIS [None]
  - RESPIRATORY DEPRESSION [None]
  - UNRESPONSIVE TO STIMULI [None]
